FAERS Safety Report 9718225 (Version 1)
Quarter: 2013Q4

REPORT INFORMATION
  Report Type: Spontaneous
  Country: US (occurrence: US)
  Receive Date: 20131125
  Receipt Date: 20131125
  Transmission Date: 20140711
  Serious: No
  Sender: FDA-Public Use
  Company Number: US-VIVUS-2013V1000124

PATIENT
  Sex: Female
  Weight: 113.5 kg

DRUGS (10)
  1. QSYMIA 3.75MG/23MG [Suspect]
     Indication: WEIGHT DECREASED
     Dosage: DAILY DOSE: 1 CAPSULE,
     Route: 048
  2. QSYMIA 7.5MG/46MG [Suspect]
     Indication: WEIGHT DECREASED
     Dosage: DAILY DOSE: 1 CAPSULE,
     Route: 048
     Dates: end: 20130221
  3. METFORMIN [Concomitant]
     Indication: DIABETES MELLITUS
     Route: 048
  4. AMARYL [Concomitant]
     Indication: DIABETES MELLITUS
     Route: 048
     Dates: start: 2010
  5. LANTUS [Concomitant]
     Indication: DIABETES MELLITUS
     Dates: start: 2011
  6. LANTUS [Concomitant]
     Dates: start: 2011
  7. NEXIUM [Concomitant]
     Indication: GASTROOESOPHAGEAL REFLUX DISEASE
     Route: 048
     Dates: start: 2007
  8. LISINOPRIL [Concomitant]
     Indication: BLOOD PRESSURE
     Route: 048
     Dates: start: 2003
  9. NORVASC [Concomitant]
     Indication: BLOOD PRESSURE
     Route: 048
     Dates: start: 2003
  10. CHOLESTEROL MEDICATION [Concomitant]
     Indication: DYSLIPIDAEMIA
     Route: 048
     Dates: start: 2007

REACTIONS (3)
  - Arthralgia [Not Recovered/Not Resolved]
  - Bone pain [Not Recovered/Not Resolved]
  - Drug dispensing error [Recovered/Resolved]
